FAERS Safety Report 9560618 (Version 1)
Quarter: 2013Q3

REPORT INFORMATION
  Report Type: Spontaneous
  Country: US (occurrence: US)
  Receive Date: 20130927
  Receipt Date: 20130927
  Transmission Date: 20140515
  Serious: No
  Sender: FDA-Public Use
  Company Number: US-BIOGENIDEC-2013BI052766

PATIENT
  Sex: Female

DRUGS (1)
  1. TECFIDERA [Suspect]
     Indication: RELAPSING-REMITTING MULTIPLE SCLEROSIS

REACTIONS (6)
  - Cardiac flutter [Recovered/Resolved]
  - Asthenia [Recovered/Resolved]
  - Feeling hot [Recovered/Resolved]
  - Flushing [Recovered/Resolved]
  - Rash [Recovered/Resolved]
  - Dyspepsia [Recovered/Resolved]
